FAERS Safety Report 7197331-1 (Version None)
Quarter: 2010Q4

REPORT INFORMATION
  Report Type: 
  Country: None (occurrence: None)
  Receive Date: 20101213
  Receipt Date: 20101202
  Transmission Date: 20110411
  Serious: Yes (Other)
  Sender: FDA-Public Use
  Company Number: 2010SP062746

PATIENT
  Age: 29 Year
  Sex: Female

DRUGS (2)
  1. CERAZETTE (DESOGESTREL /00754001/) [Suspect]
     Indication: CONTRACEPTION
     Dosage: ; PO
     Route: 048
     Dates: start: 20020101, end: 20080101
  2. DUPHASTON [Suspect]
     Indication: MENSTRUAL DISORDER
     Dosage: 2 DF; ONCE; PO
     Route: 048
     Dates: start: 20101102, end: 20101102

REACTIONS (11)
  - AMENORRHOEA [None]
  - DIZZINESS [None]
  - DRUG INTOLERANCE [None]
  - EAR DISCOMFORT [None]
  - FEELING HOT [None]
  - MALAISE [None]
  - PHOSPHENES [None]
  - PRESYNCOPE [None]
  - SUDDEN HEARING LOSS [None]
  - TINNITUS [None]
  - TRANSIENT ISCHAEMIC ATTACK [None]
